FAERS Safety Report 6170205-0 (Version None)
Quarter: 2009Q2

REPORT INFORMATION
  Report Type: 
  Country: None (occurrence: None)
  Receive Date: 20090427
  Receipt Date: 20090427
  Transmission Date: 20091009
  Serious: Yes (Hospitalization)
  Sender: FDA-Public Use
  Company Number: None

PATIENT
  Age: 54 Year
  Sex: Male

DRUGS (1)
  1. SOLIRIS [Suspect]
     Indication: PROPHYLAXIS AGAINST TRANSPLANT REJECTION
     Dosage: 1200 MG ONCE IV 600 MG TWICE IV
     Route: 042

REACTIONS (9)
  - ABDOMINAL DISTENSION [None]
  - ATRIAL FIBRILLATION [None]
  - ATRIAL TACHYCARDIA [None]
  - BRADYCARDIA [None]
  - COLONIC PSEUDO-OBSTRUCTION [None]
  - DIZZINESS POSTURAL [None]
  - HYPOTENSION [None]
  - HYPOVOLAEMIA [None]
  - INTESTINAL DILATATION [None]
